FAERS Safety Report 17173358 (Version 4)
Quarter: 2020Q3

REPORT INFORMATION
  Report Type: Report from Study
  Country: US (occurrence: US)
  Receive Date: 20191218
  Receipt Date: 20200818
  Transmission Date: 20201102
  Serious: Yes (Hospitalization)
  Sender: FDA-Public Use
  Company Number: US-ACTELION-A-NJ2019-199498

PATIENT
  Age: 2 Year
  Sex: Female

DRUGS (23)
  1. TRACLEER [Suspect]
     Active Substance: BOSENTAN
     Indication: PULMONARY HYPERTENSION
     Dosage: (32MG/5ML WATER) BID
     Route: 048
     Dates: start: 20191113
  2. ZOFRAN [Concomitant]
     Active Substance: ONDANSETRON HYDROCHLORIDE
     Indication: NAUSEA
     Dosage: 1.3 ML (1.04 MG TOTAL), TID PRN
     Route: 048
  3. PETROLATUM/MINERAL OIL [Concomitant]
     Dosage: APPLY EVERY HR, PRN
     Route: 061
  4. FLOVENT [Concomitant]
     Active Substance: FLUTICASONE PROPIONATE
     Dosage: 2 PUFFS 4 TIMES DAILY FOR ILLNESS
  5. TADALAFIL. [Concomitant]
     Active Substance: TADALAFIL
     Dosage: 10 MG, QD
  6. POTASSIUM CHLORIDE. [Concomitant]
     Active Substance: POTASSIUM CHLORIDE
     Dosage: 20 MEQ
     Route: 042
  7. KLONOPIN [Concomitant]
     Active Substance: CLONAZEPAM
     Dosage: 0.125 MG, PRN
     Route: 048
  8. CEFTRIAXONE. [Concomitant]
     Active Substance: CEFTRIAXONE
     Dosage: 50 MG/KG/DAY
     Route: 042
  9. ALBUTEROL. [Concomitant]
     Active Substance: ALBUTEROL
     Dosage: 90 MCG, 2?4 PUFFS, TWICE DAILY
  10. CIALIS [Concomitant]
     Active Substance: TADALAFIL
     Dosage: 10 MG, QD
     Route: 048
  11. SIMETHICONE (DIMETHICONE) [Concomitant]
     Active Substance: DIMETHICONE
     Dosage: 40 MG/0.6 ML BID, PRN
     Route: 048
  12. ARTIFICIAL TEARS [Concomitant]
     Active Substance: GLYCERIN\HYPROMELLOSES\POLYETHYLENE GLYCOL 400
  13. DESOWEN [Concomitant]
     Active Substance: DESONIDE
     Dosage: TOPICALLY, BID PRN
     Route: 061
  14. FLONASE [Concomitant]
     Active Substance: FLUTICASONE PROPIONATE
     Dosage: 50 MCG
     Route: 045
  15. VANCOMYCIN [Concomitant]
     Active Substance: VANCOMYCIN
     Dosage: 5 MG/ML PEDS DILUTION 10MG/KG
     Route: 042
  16. TRACLEER [Suspect]
     Active Substance: BOSENTAN
     Dosage: 8 MG, BID
     Route: 048
     Dates: start: 201911
  17. PRILOSEC [Concomitant]
     Active Substance: OMEPRAZOLE MAGNESIUM
     Dosage: 2 MG/ML
     Route: 048
  18. ARBINOXA [Concomitant]
     Active Substance: CARBINOXAMINE MALEATE
     Dosage: 2.5 ML, BID (2 MG TOTAL) ? 4 MG/5 ML
     Route: 048
  19. FLOVENT [Concomitant]
     Active Substance: FLUTICASONE PROPIONATE
     Dosage: 2 PUFFS TWICE DAILY
  20. SYNTHROID [Concomitant]
     Active Substance: LEVOTHYROXINE SODIUM
     Dosage: 25 MCG, QD
  21. AUGMENTIN BD [Concomitant]
     Active Substance: AMOXICILLIN\CLAVULANIC ACID
     Dosage: 11.6 ML (580 MG TOTAL) BID
  22. ARBINOXA [Concomitant]
     Active Substance: CARBINOXAMINE MALEATE
     Dosage: 2.5 ML, BID (2 MG TOTAL) ? 4 MG/5 ML
     Route: 048
  23. DEXTRAN 70 [Concomitant]
     Active Substance: DEXTRAN 70
     Dosage: 1?2 DROPS IN EYES, QD

REACTIONS (5)
  - Periorbital oedema [Recovered/Resolved]
  - Rash papular [Not Recovered/Not Resolved]
  - Respiratory distress [Unknown]
  - Periorbital cellulitis [Recovered/Resolved]
  - Surgery [Recovered/Resolved]

NARRATIVE: CASE EVENT DATE: 20191118
